FAERS Safety Report 7633869-8 (Version None)
Quarter: 2011Q3

REPORT INFORMATION
  Report Type: 
  Country: None (occurrence: None)
  Receive Date: 20110725
  Receipt Date: 20110721
  Transmission Date: 20111222
  Serious: No
  Sender: FDA-Public Use
  Company Number: JP-SANOFI-AVENTIS-2011SA030832

PATIENT
  Age: 63 Year
  Sex: Female
  Weight: 48.1 kg

DRUGS (12)
  1. APIDRA [Suspect]
     Dosage: 14-8-10 UNITIS
     Route: 058
     Dates: start: 20110201
  2. CEFOTIAM HYDROCHLORIDE [Suspect]
     Indication: URINARY TRACT INFECTION
     Route: 041
     Dates: start: 20101121, end: 20101130
  3. OLMESARTAN MEDOXOMIL [Concomitant]
     Dosage: IT WAS STARTED BEFORE THE ADMINISTRATION OF INSULIN GLULISINE.
     Route: 048
  4. APIDRA [Suspect]
     Route: 058
     Dates: start: 20101106, end: 20110131
  5. LANTUS [Concomitant]
     Route: 058
     Dates: start: 20101110, end: 20110131
  6. APIDRA [Suspect]
     Indication: DIABETES MELLITUS
     Route: 058
     Dates: start: 20101025, end: 20101105
  7. LANTUS [Concomitant]
     Route: 058
     Dates: start: 20101103, end: 20101109
  8. SEPAMIT [Concomitant]
     Dosage: IT WAS STARTED BEFORE THE ADMINISTRATION OF INSULIN GLULISINE.
     Route: 048
  9. LANTUS [Concomitant]
     Indication: DIABETES MELLITUS
     Route: 058
     Dates: start: 20101025, end: 20101102
  10. TRICHLORMETHIAZIDE [Concomitant]
     Dosage: IT WAS STARTED BEFORE THE ADMINISTRATION OF INSULIN GLULISINE.
     Route: 048
  11. MARZULENE S [Concomitant]
     Dosage: IT WAS STARTED BEFORE THE ADMINISTRATION OF INSULIN GLULISINE.
     Route: 048
  12. GASMOTIN [Concomitant]
     Dosage: IT WAS STARTED BEFORE THE ADMINISTRATION OF INSULIN GLULISINE.
     Route: 048

REACTIONS (1)
  - LIVER DISORDER [None]
